FAERS Safety Report 8575559 (Version 3)
Quarter: 2015Q3

REPORT INFORMATION
  Report Type: Spontaneous
  Country: FR (occurrence: FR)
  Receive Date: 20120523
  Receipt Date: 20150928
  Transmission Date: 20151125
  Serious: Yes (Other)
  Sender: FDA-Public Use
  Company Number: FR-UCBSA-057464

PATIENT
  Age: 73 Year
  Sex: Male

DRUGS (3)
  1. KEPPRA [Suspect]
     Active Substance: LEVETIRACETAM
     Dosage: 500 MG, 2X/DAY (BID)
     Route: 048
     Dates: start: 2012
  2. KEPPRA [Suspect]
     Active Substance: LEVETIRACETAM
     Indication: PRODUCT USED FOR UNKNOWN INDICATION
     Dosage: 1 G, 2X/DAY (BID)
     Route: 048
     Dates: start: 20120213, end: 2012
  3. RIFINAH [Suspect]
     Active Substance: ISONIAZID\RIFAMPIN
     Indication: PRODUCT USED FOR UNKNOWN INDICATION
     Dosage: STRENGTH: 300 MG/150 MG
     Route: 048
     Dates: start: 20120313

REACTIONS (6)
  - Vertigo [Recovered/Resolved]
  - Arterial insufficiency [Unknown]
  - Feeling abnormal [Recovered/Resolved]
  - Cerebrovascular accident [Unknown]
  - Apraxia [Recovered/Resolved]
  - Papilloedema [Not Recovered/Not Resolved]

NARRATIVE: CASE EVENT DATE: 201202
